FAERS Safety Report 15368596 (Version 1)
Quarter: 2018Q3

REPORT INFORMATION
  Report Type: Spontaneous
  Country: FR (occurrence: FR)
  Receive Date: 20180911
  Receipt Date: 20180911
  Transmission Date: 20181010
  Serious: Yes (Hospitalization, Other)
  Sender: FDA-Public Use
  Company Number: FR-TEVA-2018-FR-953325

PATIENT
  Age: 63 Year
  Sex: Female

DRUGS (7)
  1. ANAFRANIL [Concomitant]
     Active Substance: CLOMIPRAMINE HYDROCHLORIDE
     Route: 048
     Dates: start: 20180704, end: 20180805
  2. SULFARLEM [Concomitant]
     Active Substance: ANETHOLTRITHION
     Route: 048
  3. MIRTAZAPINE. [Suspect]
     Active Substance: MIRTAZAPINE
     Indication: DEPRESSION
     Dosage: 15 MILLIGRAM DAILY;
     Route: 048
     Dates: start: 20180802, end: 20180806
  4. THERALENE 4 POUR CENT, SOLUTION BUVABLE EN GOUTTES [Concomitant]
     Active Substance: TRIMEPRAZINE
     Route: 048
  5. TEMESTA [Concomitant]
     Route: 048
  6. MACROGOL 4000 MYLAN 10 G, POUDRE POUR SOLUTION BUVABLE EN SACHET?DOSE [Concomitant]
     Active Substance: POLYETHYLENE GLYCOL 4000
     Route: 048
  7. ZOPICLONE [Concomitant]
     Active Substance: ZOPICLONE
     Route: 048

REACTIONS (1)
  - Hepatocellular injury [Recovering/Resolving]

NARRATIVE: CASE EVENT DATE: 20180807
